FAERS Safety Report 9716652 (Version 1)
Quarter: 2013Q4

REPORT INFORMATION
  Report Type: Spontaneous
  Country: US (occurrence: None)
  Receive Date: 20131126
  Receipt Date: 20131126
  Transmission Date: 20140711
  Serious: Yes (Hospitalization)
  Sender: FDA-Public Use
  Company Number: None

PATIENT
  Age: 49 Year
  Sex: Female
  Weight: 78.93 kg

DRUGS (12)
  1. BENLYSTA [Suspect]
     Indication: SYSTEMIC LUPUS ERYTHEMATOSUS
     Route: 042
     Dates: start: 20120726, end: 20130918
  2. ALENDRONATE [Concomitant]
  3. FLEXERIL [Concomitant]
  4. FOLIC ACID [Concomitant]
  5. HYDROXYCHLOROQUINE [Concomitant]
  6. METHOTREXATE [Concomitant]
  7. OMEPRAZOLE [Concomitant]
  8. PREMARIN [Concomitant]
  9. RESTASIS [Concomitant]
  10. SYNTHROID [Concomitant]
  11. TOPROL XL [Concomitant]
  12. ZOLOFT [Concomitant]

REACTIONS (2)
  - Sinusitis [None]
  - Aspergillus infection [None]
